FAERS Safety Report 5291758-0 (Version None)
Quarter: 2007Q2

REPORT INFORMATION
  Report Type: 
  Country: None (occurrence: None)
  Receive Date: 20070410
  Receipt Date: 20070330
  Transmission Date: 20071010
  Serious: Yes (Other)
  Sender: FDA-Public Use
  Company Number: PHBS2007CH05751

PATIENT
  Age: 58 Year
  Sex: Male

DRUGS (2)
  1. STALEVO 100 [Suspect]
     Indication: PARKINSON'S DISEASE
     Dosage: 200 MG, TID
     Route: 048
     Dates: start: 20061215
  2. EFFEXOR [Concomitant]
     Dosage: 225 MG/D
     Route: 065

REACTIONS (3)
  - GOUTY ARTHRITIS [None]
  - HYPERURICAEMIA [None]
  - TOE DEFORMITY [None]
